FAERS Safety Report 8714191 (Version 2)
Quarter: 2013Q1

REPORT INFORMATION
  Report Type: Report from Study
  Country: US (occurrence: US)
  Receive Date: 20120809
  Receipt Date: 20130204
  Transmission Date: 20140127
  Serious: Yes (Other)
  Sender: FDA-Public Use
  Company Number: US-ABBOTT-12P-163-0965079-00

PATIENT
  Sex: Female
  Weight: 93.52 kg

DRUGS (1)
  1. LUPRON DEPOT 3.75 MG [Suspect]
     Indication: ENDOMETRIOSIS
     Dates: start: 201204

REACTIONS (4)
  - Pelvic pain [Recovered/Resolved]
  - Dysmenorrhoea [Unknown]
  - Adenomyosis [Unknown]
  - Drug ineffective [Not Recovered/Not Resolved]
